FAERS Safety Report 8730262 (Version 2)
Quarter: 2012Q4

REPORT INFORMATION
  Report Type: 
  Country: US (occurrence: US)
  Receive Date: 20120817
  Receipt Date: 20121017
  Transmission Date: 20130627
  Serious: Yes (Death, Other)
  Sender: FDA-Public Use
  Company Number: US-PURDUE-USA-2012-0091523

PATIENT
  Sex: Female
  Weight: 52.61 kg

DRUGS (19)
  1. OXYCONTIN (NDA 22-272) [Suspect]
     Indication: PAIN
     Dosage: 10 mg, q12h
     Route: 048
     Dates: start: 20120131, end: 20120404
  2. OXYCONTIN (NDA 22-272) [Suspect]
     Indication: BONE PAIN
  3. OXYCODONE HCL IMMEDIATE RELEASE (91-490) [Suspect]
     Indication: PAIN
     Dosage: 10-20 mg q3-4 h prn
     Dates: start: 20120131
  4. XALKORI [Suspect]
     Indication: LUNG NEOPLASM MALIGNANT
     Dosage: 250 mg, bid
     Route: 048
     Dates: start: 20120222, end: 20120229
  5. MS CONTIN TABLETS [Concomitant]
     Indication: PAIN
  6. SENOKOT [Concomitant]
     Indication: PRODUCT USED FOR UNKNOWN INDICATION
     Dosage: UNK, prn
  7. KLONOPIN [Concomitant]
     Indication: PRODUCT USED FOR UNKNOWN INDICATION
     Dosage: 0.5 mg, hs
  8. TYLENOL /00020001/ [Concomitant]
     Indication: PRODUCT USED FOR UNKNOWN INDICATION
     Dosage: 500 mg, prn
  9. VITAMIN B6 [Concomitant]
     Indication: PRODUCT USED FOR UNKNOWN INDICATION
     Dosage: 50 mg, bid
  10. VIACTIV                            /00751501/ [Concomitant]
     Indication: PRODUCT USED FOR UNKNOWN INDICATION
     Dosage: UNK, bid
  11. AMBIEN [Concomitant]
     Indication: PRODUCT USED FOR UNKNOWN INDICATION
     Dosage: 5 mg, hs
  12. VITAMIN B12                        /00056201/ [Concomitant]
     Indication: PRODUCT USED FOR UNKNOWN INDICATION
     Dosage: 1 mg, qd prn
  13. SUDAFED                            /00076302/ [Concomitant]
     Indication: PRODUCT USED FOR UNKNOWN INDICATION
     Dosage: UNK, prn
  14. CHLORASEPTIC [Concomitant]
     Indication: PRODUCT USED FOR UNKNOWN INDICATION
     Dosage: UNK, prn
  15. ROBITUSSIN                         /00048001/ [Concomitant]
     Indication: COUGH
     Dosage: UNK, prn
  16. TUSSIONEX                          /00140501/ [Concomitant]
     Indication: COUGH
     Dosage: UNK, prn
  17. ZOFRAN                             /00955301/ [Concomitant]
  18. FOSAMAX [Concomitant]
     Indication: DYSPEPSIA
  19. ROXANOL [Concomitant]
     Indication: PAIN

REACTIONS (12)
  - Malignant neoplasm progression [Fatal]
  - Haemoptysis [Unknown]
  - Lymphadenopathy [Unknown]
  - Drug ineffective [Unknown]
  - Musculoskeletal pain [Unknown]
  - Nausea [Unknown]
  - Decreased appetite [Unknown]
  - Unevaluable event [Unknown]
  - Vomiting [Unknown]
  - Constipation [Unknown]
  - Headache [Unknown]
  - Product size issue [Unknown]
